FAERS Safety Report 5468309-0 (Version None)
Quarter: 2007Q3

REPORT INFORMATION
  Report Type: 
  Country: None (occurrence: None)
  Receive Date: 20070924
  Receipt Date: 20070910
  Transmission Date: 20080115
  Serious: Yes (Congenital Anomaly)
  Sender: FDA-Public Use
  Company Number: B0487861A

PATIENT

DRUGS (1)
  1. VALACYCLOVIR [Suspect]
     Indication: CYTOMEGALOVIRUS INFECTION
     Dosage: 2 GRAM (S) / FOUR TIMES PER DAY/TRANSP
     Route: 064

REACTIONS (12)
  - AMNIOCENTESIS ABNORMAL [None]
  - CARDIOMYOPATHY [None]
  - CEREBRAL CALCIFICATION [None]
  - CONGENITAL ANOMALY [None]
  - CONGENITAL CYTOMEGALOVIRUS INFECTION [None]
  - DEAFNESS UNILATERAL [None]
  - DRUG EXPOSURE DURING PREGNANCY [None]
  - FOETAL GROWTH RETARDATION [None]
  - HEPATIC CALCIFICATION [None]
  - INTESTINAL FUNCTIONAL DISORDER [None]
  - PREMATURE BABY [None]
  - VIRAL LOAD INCREASED [None]
